FAERS Safety Report 5507975-8 (Version None)
Quarter: 2007Q4

REPORT INFORMATION
  Report Type: 
  Country: None (occurrence: None)
  Receive Date: 20071031
  Receipt Date: 20070730
  Transmission Date: 20080405
  Serious: No
  Sender: FDA-Public Use
  Company Number: 200712113BWH

PATIENT
  Sex: Male

DRUGS (6)
  1. NEXAVAR [Suspect]
     Dosage: 400 MG, BID, ORAL, 200 MG, BID, ORAL
     Route: 048
     Dates: start: 20070627
  2. NEXAVAR [Suspect]
     Dosage: 400 MG, BID, ORAL, 200 MG, BID, ORAL
     Route: 048
     Dates: start: 20070712
  3. OXYGEN [Concomitant]
  4. THYROID TAB [Concomitant]
  5. PLAVIX [Concomitant]
  6. ALLERGY MEDICATION [Concomitant]

REACTIONS (4)
  - FATIGUE [None]
  - OEDEMA PERIPHERAL [None]
  - PALMAR-PLANTAR ERYTHRODYSAESTHESIA SYNDROME [None]
  - RASH [None]
